FAERS Safety Report 5906016-8 (Version None)
Quarter: 2008Q4

REPORT INFORMATION
  Report Type: 
  Country: None (occurrence: None)
  Receive Date: 20081002
  Receipt Date: 20080922
  Transmission Date: 20090506
  Serious: Yes (Hospitalization)
  Sender: FDA-Public Use
  Company Number: US-KINGPHARMUSA00001-K200801104

PATIENT

DRUGS (11)
  1. ALTACE [Suspect]
     Dosage: 10 MG, QD
     Route: 048
     Dates: start: 20080812, end: 20080824
  2. ALTACE [Suspect]
     Dosage: UNK, QD
     Route: 048
     Dates: end: 20080811
  3. DIFFU K [Suspect]
     Dosage: 3600 MG, UNK
     Route: 048
     Dates: start: 20080810, end: 20080824
  4. SKENAN [Suspect]
     Indication: PAIN
     Dosage: 30 MG, QD
     Route: 048
  5. MORPHINE [Suspect]
     Indication: PAIN
     Dosage: 10 MG, QD
     Route: 048
     Dates: start: 20080801, end: 20080824
  6. AMLOD [Concomitant]
     Dosage: 10 MG, UNK
     Route: 048
     Dates: end: 20080824
  7. ATENOLOL [Concomitant]
     Dosage: 200 MG, UNK
     Route: 048
  8. MOPRAL                             /00661201/ [Concomitant]
     Dosage: 20 MG, UNK
     Route: 048
     Dates: start: 20080801, end: 20080824
  9. XANAX [Concomitant]
     Dosage: .25 MG, UNK
     Route: 048
     Dates: start: 20080801, end: 20080824
  10. NOVORAPID [Concomitant]
     Indication: INSULIN-REQUIRING TYPE 2 DIABETES MELLITUS
     Dosage: 10 IU, UNK
     Route: 058
     Dates: start: 20080801, end: 20080824
  11. NOVOLOG [Concomitant]
     Indication: INSULIN-REQUIRING TYPE 2 DIABETES MELLITUS
     Dosage: 60 IU, UNK
     Route: 058
     Dates: start: 20080801, end: 20080824

REACTIONS (7)
  - BLOOD CREATINE [None]
  - DRUG INTERACTION [None]
  - HEMIPLEGIA [None]
  - HYPERKALAEMIA [None]
  - MALAISE [None]
  - OVERDOSE [None]
  - RENAL FAILURE ACUTE [None]
